FAERS Safety Report 9813726 (Version 1)
Quarter: 2014Q1

REPORT INFORMATION
  Report Type: Spontaneous
  Country: NL (occurrence: NL)
  Receive Date: 20140113
  Receipt Date: 20140113
  Transmission Date: 20141002
  Serious: Yes (Other)
  Sender: FDA-Public Use
  Company Number: NL-BRISTOL-MYERS SQUIBB COMPANY-19992973

PATIENT
  Age: 43 Year
  Sex: Male

DRUGS (2)
  1. ABILIFY [Suspect]
     Indication: SCHIZOPHRENIA
     Dosage: STARTED 3 YEARS AGO
     Route: 048
  2. FLUANXOL [Suspect]
     Indication: SCHIZOPHRENIA
     Dosage: STARTED 1.5 YEARS AGO
     Route: 048

REACTIONS (3)
  - Mania [Recovered/Resolved]
  - Eczema [Recovered/Resolved]
  - Psoriasis [Not Recovered/Not Resolved]
